FAERS Safety Report 6854095-6 (Version None)
Quarter: 2010Q3

REPORT INFORMATION
  Report Type: 
  Country: None (occurrence: None)
  Receive Date: 20100717
  Receipt Date: 20080206
  Transmission Date: 20110219
  Serious: No
  Sender: FDA-Public Use
  Company Number: US-PFIZER INC-2007105867

PATIENT

DRUGS (1)
  1. CHANTIX [Suspect]

REACTIONS (5)
  - ASTHENIA [None]
  - BACK PAIN [None]
  - HEADACHE [None]
  - PALPITATIONS [None]
  - UNEVALUABLE EVENT [None]
